FAERS Safety Report 7901857-X (Version None)
Quarter: 2011Q4

REPORT INFORMATION
  Report Type: 
  Country: None (occurrence: None)
  Receive Date: 20111108
  Receipt Date: 20111104
  Transmission Date: 20120403
  Serious: Yes (Other)
  Sender: FDA-Public Use
  Company Number: US-AMGEN-USASP2011045133

PATIENT
  Age: 88 Year
  Sex: Male
  Weight: 107.94 kg

DRUGS (26)
  1. DYAZIDE [Concomitant]
     Dosage: 1 UNK, UNK
  2. BENADRYL [Concomitant]
     Dosage: 25 MG, UNK
     Route: 042
  3. HEPARIN [Concomitant]
     Dosage: 1500 UNK, UNK
  4. PLATELETS [Concomitant]
     Indication: IDIOPATHIC THROMBOCYTOPENIC PURPURA
  5. KYTRIL [Concomitant]
     Dosage: 1 MG, UNK
     Route: 042
  6. RITUXAN [Concomitant]
     Indication: IDIOPATHIC THROMBOCYTOPENIC PURPURA
     Dosage: 840 MG, UNK
     Route: 042
  7. ACETAMINOPHEN AND HYDROCODONE BITARTRATE [Concomitant]
     Indication: PAIN
     Dosage: UNK UNK, PRN
  8. LASIX [Concomitant]
     Dosage: 20 MG, UNK
     Route: 042
  9. DECADRON [Concomitant]
     Dosage: 8 MG, UNK
     Route: 042
  10. SOLU-CORTEF [Concomitant]
     Dosage: 100 MG, UNK
     Route: 042
  11. TYLENOL (CAPLET) [Concomitant]
     Dosage: 650 MG, UNK
     Route: 048
  12. LOSARTAN POTASSIUM [Concomitant]
     Dosage: 50 MG, QD
  13. HYDROCHLOROTHIAZIDE [Concomitant]
     Dosage: 50 MG, QD
  14. CORTICOSTEROIDS [Concomitant]
     Indication: IDIOPATHIC THROMBOCYTOPENIC PURPURA
  15. NPLATE [Suspect]
     Indication: IDIOPATHIC THROMBOCYTOPENIC PURPURA
     Dosage: 108 MUG, QWK
     Route: 058
     Dates: start: 20081111
  16. PREVACID [Concomitant]
     Dosage: 30 UNK, QD
  17. SYNTHROID [Concomitant]
     Dosage: 0.75 MG, QD
  18. DIFLUCAN [Concomitant]
     Dosage: 20 MG, QWK
  19. RED BLOOD CELLS [Concomitant]
     Dosage: 2 UNIT, UNK
     Route: 042
  20. ZANTAC [Concomitant]
     Dosage: 50 MG, UNK
     Route: 042
  21. POLYGAM S/D [Concomitant]
     Indication: IDIOPATHIC THROMBOCYTOPENIC PURPURA
     Dosage: 80 UNK, UNK
     Route: 042
  22. VINCRISTINE [Concomitant]
     Indication: IDIOPATHIC THROMBOCYTOPENIC PURPURA
     Dosage: 2 MG, UNK
     Route: 042
  23. SOLU-MEDROL [Concomitant]
     Dosage: 40 MG, UNK
     Route: 042
  24. PNEUMOVAX VACCIN [Concomitant]
     Dosage: 0.5 ML, ONE TIME DOSE
     Route: 030
  25. SIMVASTATIN [Concomitant]
     Dosage: 20 MG, QD
  26. PREDNISONE [Concomitant]
     Indication: IDIOPATHIC THROMBOCYTOPENIC PURPURA

REACTIONS (15)
  - UPPER AIRWAY OBSTRUCTION [None]
  - SUBMANDIBULAR MASS [None]
  - ANAEMIA [None]
  - DYSPHAGIA [None]
  - DECUBITUS ULCER [None]
  - PETECHIAE [None]
  - OEDEMA PERIPHERAL [None]
  - ORAL CANDIDIASIS [None]
  - EVANS SYNDROME [None]
  - OSTEOMYELITIS [None]
  - ECCHYMOSIS [None]
  - DIABETES MELLITUS [None]
  - THERAPEUTIC RESPONSE DECREASED [None]
  - ANAL CANDIDIASIS [None]
  - STASIS DERMATITIS [None]
